FAERS Safety Report 9720460 (Version 2)
Quarter: 2014Q1

REPORT INFORMATION
  Report Type: Report from Study
  Country: US (occurrence: US)
  Receive Date: 20131129
  Receipt Date: 20140130
  Transmission Date: 20141002
  Serious: Yes (Hospitalization)
  Sender: FDA-Public Use
  Company Number: US-JNJFOC-20131113804

PATIENT
  Sex: Female

DRUGS (6)
  1. REMICADE [Suspect]
     Indication: ANKYLOSING SPONDYLITIS
     Route: 042
     Dates: start: 20131101
  2. REMICADE [Suspect]
     Indication: ANKYLOSING SPONDYLITIS
     Route: 042
     Dates: start: 201303
  3. METHOTREXATE [Concomitant]
     Indication: ARTHRITIS
     Route: 065
  4. FOLIC ACID [Concomitant]
     Route: 065
  5. FLEXERIL [Concomitant]
     Route: 065
  6. MOBIC [Concomitant]
     Route: 065

REACTIONS (2)
  - Vertigo [Recovering/Resolving]
  - Hypertension [Recovering/Resolving]
